FAERS Safety Report 7761693-4 (Version None)
Quarter: 2011Q3

REPORT INFORMATION
  Report Type: 
  Country: None (occurrence: None)
  Receive Date: 20110920
  Receipt Date: 20110915
  Transmission Date: 20111222
  Serious: Yes (Hospitalization)
  Sender: FDA-Public Use
  Company Number: FR-BRISTOL-MYERS SQUIBB COMPANY-16069932

PATIENT
  Age: 40 Year
  Sex: Female

DRUGS (1)
  1. BUSPAR [Suspect]
     Route: 048
     Dates: start: 20110809, end: 20110816

REACTIONS (1)
  - ERYTHEMA MULTIFORME [None]
